FAERS Safety Report 24991333 (Version 1)
Quarter: 2025Q1

REPORT INFORMATION
  Report Type: Spontaneous
  Country: GB (occurrence: GB)
  Receive Date: 20250220
  Receipt Date: 20250220
  Transmission Date: 20250409
  Serious: Yes (Hospitalization, Other)
  Sender: TORRENT PHARMA INC.
  Company Number: None

PATIENT
  Age: 43 Year
  Sex: Female

DRUGS (6)
  1. LAMOTRIGINE [Suspect]
     Active Substance: LAMOTRIGINE
     Indication: Product used for unknown indication
     Route: 065
     Dates: start: 20240829
  2. Evacal-D3 [Concomitant]
     Indication: Product used for unknown indication
     Dosage: 1500 MG / 400 UNIT CHEWABLE TABLETS ONE TO BE TAKEN TWICE A DAY
     Route: 048
     Dates: start: 20240806
  3. FEXOFENADINE [Concomitant]
     Active Substance: FEXOFENADINE HYDROCHLORIDE
     Indication: Product used for unknown indication
     Route: 065
     Dates: start: 20240829
  4. FUROSEMIDE [Concomitant]
     Active Substance: FUROSEMIDE
     Indication: Product used for unknown indication
     Route: 065
     Dates: start: 20240806
  5. Symbicort 200 / 6 Turbohaler [Concomitant]
     Indication: Product used for unknown indication
     Dosage: TWO PUFFS TO BE INHALED TWICE A DAY- OM AND EVENING
     Route: 055
     Dates: start: 20240828
  6. THIAMINE [Concomitant]
     Active Substance: THIAMINE
     Indication: Product used for unknown indication
     Route: 065
     Dates: start: 20240829

REACTIONS (1)
  - Gastrointestinal disorder [Unknown]
